FAERS Safety Report 4518021-7 (Version None)
Quarter: 2004Q4

REPORT INFORMATION
  Report Type: 
  Country: None (occurrence: None)
  Receive Date: 20041130
  Receipt Date: 20041116
  Transmission Date: 20050328
  Serious: Yes (Other)
  Sender: FDA-Public Use
  Company Number: US-2004-035287

PATIENT
  Age: 28 Year
  Sex: Female

DRUGS (2)
  1. MIRENA [Suspect]
     Dosage: 20 UG/DAY, CONT, INTRA-UTERINE
     Route: 015
     Dates: start: 20040201
  2. ZOLOFT [Concomitant]

REACTIONS (3)
  - DISEASE RECURRENCE [None]
  - LEUKOCYTOCLASTIC VASCULITIS [None]
  - STREPTOCOCCAL INFECTION [None]
